FAERS Safety Report 15707160 (Version 1)
Quarter: 2018Q4

REPORT INFORMATION
  Report Type: Report from Study
  Country: GB (occurrence: GB)
  Receive Date: 20181210
  Receipt Date: 20181210
  Transmission Date: 20190205
  Serious: Yes (Hospitalization, Other)
  Sender: FDA-Public Use
  Company Number: GB-BRISTOL-MYERS SQUIBB COMPANY-BMS-2016-085042

PATIENT
  Sex: Female

DRUGS (1)
  1. ABATACEPT [Suspect]
     Active Substance: ABATACEPT
     Indication: RHEUMATOID ARTHRITIS
     Dosage: 125 MG, QWK
     Route: 058
     Dates: start: 20140708

REACTIONS (14)
  - Pharyngitis [Unknown]
  - Infection [Unknown]
  - Injection site bruising [Unknown]
  - Weight decreased [Unknown]
  - Feeding disorder [Unknown]
  - Malaise [Unknown]
  - Spinal fracture [Unknown]
  - Pyrexia [Unknown]
  - Dizziness [Unknown]
  - Adverse event [Unknown]
  - Norovirus test positive [Unknown]
  - Pulmonary oedema [Unknown]
  - Lung infection [Unknown]
  - Diarrhoea [Unknown]
